FAERS Safety Report 6721508-X (Version None)
Quarter: 2010Q2

REPORT INFORMATION
  Report Type: 
  Country: None (occurrence: None)
  Receive Date: 20100512
  Receipt Date: 20100507
  Transmission Date: 20101027
  Serious: Yes (Hospitalization)
  Sender: FDA-Public Use
  Company Number: HU-SANOFI-AVENTIS-2010SA018998

PATIENT
  Age: 61 Year
  Sex: Male

DRUGS (12)
  1. DOCETAXEL [Suspect]
     Indication: HEAD AND NECK CANCER
     Route: 041
     Dates: start: 20090810, end: 20090810
  2. DOCETAXEL [Suspect]
     Route: 041
     Dates: start: 20090922, end: 20090922
  3. CETUXIMAB [Suspect]
     Indication: HEAD AND NECK CANCER
     Route: 042
     Dates: start: 20090810, end: 20090810
  4. CETUXIMAB [Suspect]
     Route: 042
     Dates: start: 20091005, end: 20091005
  5. FLUOROURACIL [Suspect]
     Indication: HEAD AND NECK CANCER
     Route: 042
     Dates: start: 20090811, end: 20090811
  6. FLUOROURACIL [Suspect]
     Route: 042
     Dates: start: 20090922, end: 20090927
  7. CISPLATIN [Suspect]
     Indication: HEAD AND NECK CANCER
     Route: 042
     Dates: start: 20090810, end: 20090810
  8. CISPLATIN [Suspect]
     Route: 042
     Dates: start: 20090922, end: 20090922
  9. INDAPAMIDE/PERINDOPRIL [Concomitant]
     Indication: HYPERTENSION
     Route: 048
     Dates: start: 20090722
  10. ACETYLSALICYLIC ACID [Concomitant]
     Route: 048
     Dates: start: 20090722
  11. MOMETASONE FUROATE [Concomitant]
     Route: 003
     Dates: start: 20091005, end: 20091008
  12. SULPHADIMIDINE [Concomitant]
     Indication: CONJUNCTIVITIS
     Route: 047
     Dates: start: 20091005, end: 20091009

REACTIONS (1)
  - HYPOKALAEMIA [None]
